FAERS Safety Report 8161963-4 (Version None)
Quarter: 2012Q1

REPORT INFORMATION
  Report Type: 
  Country: None (occurrence: None)
  Receive Date: 20120224
  Receipt Date: 20120222
  Transmission Date: 20120608
  Serious: Yes (Disabling)
  Sender: FDA-Public Use
  Company Number: AU-PFIZER INC-2011259893

PATIENT
  Age: 35 Year
  Sex: Female

DRUGS (2)
  1. PRISTIQ [Suspect]
     Dosage: 200 MG, 1X/DAY
     Route: 048
     Dates: end: 20110101
  2. PRISTIQ [Suspect]
     Indication: DEPRESSION
     Dosage: UNK
     Route: 048

REACTIONS (10)
  - INSOMNIA [None]
  - IRRITABILITY [None]
  - FATIGUE [None]
  - DRUG WITHDRAWAL SYNDROME [None]
  - PRURITUS [None]
  - ASTHENIA [None]
  - TEARFULNESS [None]
  - AGITATION [None]
  - HEADACHE [None]
  - HYPERHIDROSIS [None]
